FAERS Safety Report 7406954-3 (Version None)
Quarter: 2011Q2

REPORT INFORMATION
  Report Type: 
  Country: None (occurrence: None)
  Receive Date: 20110411
  Receipt Date: 20110405
  Transmission Date: 20111010
  Serious: No
  Sender: FDA-Public Use
  Company Number: US-PFIZER INC-2011057883

PATIENT
  Sex: Female

DRUGS (11)
  1. LORTAB [Concomitant]
     Dosage: 1 DF, 2X/DAY
     Route: 048
     Dates: start: 20101222
  2. PRISTIQ [Suspect]
     Indication: ANXIETY
     Dosage: 1 DF, 1X/DAY
     Route: 048
     Dates: start: 20101222
  3. IBUPROFEN [Concomitant]
     Dosage: 1 DF, UNK
     Route: 048
     Dates: start: 20090923
  4. XANAX [Concomitant]
     Dosage: 1 DF, AS NEEDED
     Route: 048
     Dates: start: 20090623
  5. PRISTIQ [Suspect]
     Indication: DEPRESSION
  6. IMIPRAMINE HYDROCHLORIDE [Concomitant]
     Dosage: 1 DF, UNK
     Route: 048
     Dates: start: 20100211
  7. ULTRAM [Concomitant]
     Dosage: 1 DF, 4X/DAY
     Route: 048
     Dates: start: 20090731
  8. SEROQUEL [Concomitant]
     Dosage: 1 TO 2 AT BEDTIME
     Route: 048
     Dates: start: 20090623
  9. XANAX [Concomitant]
     Dosage: 1 TO 2 TABLET AT BEDTIME
     Route: 048
     Dates: start: 20090623
  10. TRAZODONE [Suspect]
     Dosage: 2 DF, UNK
     Route: 048
     Dates: start: 20100108
  11. DARVOCET-N 50 [Concomitant]
     Dosage: 1 DF, 2X/DAY
     Route: 048
     Dates: start: 20090717

REACTIONS (2)
  - DRUG INEFFECTIVE [None]
  - INSOMNIA [None]
